FAERS Safety Report 7472469-X (Version None)
Quarter: 2011Q2

REPORT INFORMATION
  Report Type: 
  Country: None (occurrence: None)
  Receive Date: 20110511
  Receipt Date: 20110428
  Transmission Date: 20111010
  Serious: Yes (Other)
  Sender: FDA-Public Use
  Company Number: PHHY2011CA20128

PATIENT

DRUGS (6)
  1. TEKTURNA [Suspect]
     Indication: HYPERTENSION
     Dosage: 300 MG, QD
     Route: 048
     Dates: start: 20090618, end: 20100121
  2. HUMULIN N [Concomitant]
  3. HUMALOG [Concomitant]
  4. VALSARTAN [Concomitant]
  5. ACE INHIBITORS AND DIURETICS [Suspect]
     Dosage: UNK
  6. HYDROCHLOROTHIAZIDE [Concomitant]

REACTIONS (2)
  - URINE ALBUMIN/CREATININE RATIO INCREASED [None]
  - DEPRESSION [None]
